FAERS Safety Report 12171187 (Version 2)
Quarter: 2016Q2

REPORT INFORMATION
  Report Type: Spontaneous
  Country: US (occurrence: US)
  Receive Date: 20160311
  Receipt Date: 20160427
  Transmission Date: 20160815
  Serious: No
  Sender: FDA-Public Use
  Company Number: US-009507513-1603USA003834

PATIENT
  Age: 23 Year
  Sex: Female
  Weight: 61.68 kg

DRUGS (1)
  1. NEXPLANON [Suspect]
     Active Substance: ETONOGESTREL
     Indication: CONTRACEPTION
     Dosage: UNK
     Route: 059
     Dates: start: 20151215

REACTIONS (3)
  - Implant site pain [Recovered/Resolved]
  - Implant site bruising [Recovered/Resolved]
  - Ecchymosis [Recovering/Resolving]

NARRATIVE: CASE EVENT DATE: 20151215
